FAERS Safety Report 24584073 (Version 1)
Quarter: 2024Q4

REPORT INFORMATION
  Report Type: Report from Study
  Country: CN (occurrence: CN)
  Receive Date: 20241106
  Receipt Date: 20241106
  Transmission Date: 20250115
  Serious: Yes (Life-Threatening, Hospitalization, Other)
  Sender: ALEXION PHARMACEUTICALS
  Company Number: CN-ASTRAZENECA-202410GLO011627CN

PATIENT
  Age: 46 Year

DRUGS (12)
  1. OSIMERTINIB [Suspect]
     Active Substance: OSIMERTINIB
     Indication: Non-small cell lung cancer
  2. OSIMERTINIB [Suspect]
     Active Substance: OSIMERTINIB
  3. OSIMERTINIB [Suspect]
     Active Substance: OSIMERTINIB
  4. OSIMERTINIB [Suspect]
     Active Substance: OSIMERTINIB
  5. PEMETREXED [Suspect]
     Active Substance: PEMETREXED
     Indication: Non-small cell lung cancer
     Route: 065
  6. PEMETREXED [Suspect]
     Active Substance: PEMETREXED
  7. PEMETREXED [Suspect]
     Active Substance: PEMETREXED
     Route: 065
  8. PEMETREXED [Suspect]
     Active Substance: PEMETREXED
  9. CARBOPLATIN [Suspect]
     Active Substance: CARBOPLATIN
     Indication: Non-small cell lung cancer
     Route: 065
  10. CARBOPLATIN [Suspect]
     Active Substance: CARBOPLATIN
  11. CARBOPLATIN [Suspect]
     Active Substance: CARBOPLATIN
     Route: 065
  12. CARBOPLATIN [Suspect]
     Active Substance: CARBOPLATIN

REACTIONS (1)
  - Myelosuppression [Recovered/Resolved]
